FAERS Safety Report 7293993-9 (Version None)
Quarter: 2011Q1

REPORT INFORMATION
  Report Type: 
  Country: None (occurrence: None)
  Receive Date: 20110203
  Receipt Date: 20110121
  Transmission Date: 20110831
  Serious: Yes (Other)
  Sender: FDA-Public Use
  Company Number: GER/GER/11/0017301

PATIENT
  Age: 60 Year
  Sex: Male

DRUGS (1)
  1. VALPRO BETA CHRONO 500 MG RETARDTABLETTEN (VALPROATE SODIUM) [Suspect]
     Indication: EPILEPSY
     Dosage: 500 MG, 2 IN 1 D, ORAL
     Route: 048
     Dates: start: 20060101

REACTIONS (1)
  - SLEEP APNOEA SYNDROME [None]
